FAERS Safety Report 4506649-X (Version None)
Quarter: 2004Q4

REPORT INFORMATION
  Report Type: 
  Country: None (occurrence: None)
  Receive Date: 20041117
  Receipt Date: 20041105
  Transmission Date: 20050328
  Serious: Yes (Hospitalization)
  Sender: FDA-Public Use
  Company Number: 200415146BCC

PATIENT
  Age: 79 Year
  Sex: Male
  Weight: 79.3795 kg

DRUGS (7)
  1. ALEVE [Suspect]
     Indication: BACK PAIN
     Dosage: 440 MG , QD, ORAL
     Route: 048
     Dates: start: 20041010, end: 20041015
  2. ASPIRIN [Suspect]
     Dosage: 81 MG, QD, ORAL
     Route: 048
  3. PLAVIX [Suspect]
  4. HYZAAR [Concomitant]
  5. IMDUR [Concomitant]
  6. PLETAL [Concomitant]
  7. ZOCOR [Concomitant]

REACTIONS (7)
  - ABDOMINAL DISTENSION [None]
  - DIALYSIS [None]
  - DRUG INTERACTION [None]
  - GASTRIC ULCER HAEMORRHAGE [None]
  - INCISION SITE HAEMORRHAGE [None]
  - RENAL FAILURE [None]
  - SEPSIS [None]
